FAERS Safety Report 4354946-3 (Version None)
Quarter: 2004Q2

REPORT INFORMATION
  Report Type: 
  Country: None (occurrence: None)
  Receive Date: 20040504
  Receipt Date: 20040421
  Transmission Date: 20050107
  Serious: Yes (Other)
  Sender: FDA-Public Use
  Company Number: 2003125945

PATIENT
  Sex: Male
  Weight: 90.7194 kg

DRUGS (4)
  1. NEURONTIN [Suspect]
     Indication: BIPOLAR DISORDER
     Dosage: 300 MG (TID), ORAL
     Route: 048
     Dates: start: 20021201
  2. CLONIDINE [Concomitant]
  3. LORAZEPAM [Concomitant]
  4. FOSINOPRIL SODIUM [Concomitant]

REACTIONS (16)
  - ABNORMAL DREAMS [None]
  - ANGER [None]
  - BODY HEIGHT DECREASED [None]
  - CONDITION AGGRAVATED [None]
  - DIARRHOEA [None]
  - DRUG EFFECT DECREASED [None]
  - EATING DISORDER [None]
  - GRAND MAL CONVULSION [None]
  - HYPERHIDROSIS [None]
  - MUSCLE CRAMP [None]
  - NAUSEA [None]
  - NEGATIVE THOUGHTS [None]
  - PSYCHIATRIC SYMPTOM [None]
  - TREMOR [None]
  - VOMITING [None]
  - WEIGHT INCREASED [None]
